FAERS Safety Report 18140055 (Version 3)
Quarter: 2020Q4

REPORT INFORMATION
  Report Type: Spontaneous
  Country: US (occurrence: US)
  Receive Date: 20200812
  Receipt Date: 20201030
  Transmission Date: 20210113
  Serious: No
  Sender: FDA-Public Use
  Company Number: US-LUPIN PHARMACEUTICALS INC.-2020-04598

PATIENT
  Age: 60 Year
  Sex: Female
  Weight: 55.33 kg

DRUGS (1)
  1. LEVOTHYROXINE SODIUM TABLETS USP, 100 MCG [Suspect]
     Active Substance: LEVOTHYROXINE SODIUM
     Indication: AUTOIMMUNE THYROIDITIS
     Dosage: 1 DOSAGE FORM, QD
     Route: 048
     Dates: start: 20200614, end: 20200715

REACTIONS (2)
  - Alopecia [Not Recovered/Not Resolved]
  - Constipation [Not Recovered/Not Resolved]

NARRATIVE: CASE EVENT DATE: 20200617
